FAERS Safety Report 24459473 (Version 1)
Quarter: 2024Q4

REPORT INFORMATION
  Report Type: Report from Study
  Country: US (occurrence: US)
  Receive Date: 20241018
  Receipt Date: 20241018
  Transmission Date: 20250115
  Serious: No
  Sender: ROCHE
  Company Number: US-ROCHE-3542615

PATIENT
  Age: 78 Year
  Sex: Female
  Weight: 72.57 kg

DRUGS (13)
  1. RITUXAN [Suspect]
     Active Substance: RITUXIMAB
     Indication: Rheumatoid arthritis
     Dosage: FIRST INFUSION
     Route: 041
     Dates: start: 2018
  2. RITUXAN [Suspect]
     Active Substance: RITUXIMAB
     Dosage: INFUSE 1000MG INTRAVENOUSLY ON DAY(S) 1 AND DAY(S) 15 , REPEAT EVERY 4 MONTH(S), DATE OF TREATMENT:
     Route: 041
  3. FENOFIBRATE [Concomitant]
     Active Substance: FENOFIBRATE
  4. AMLODIPINE [Concomitant]
     Active Substance: AMLODIPINE BESYLATE
  5. OMEPRAZOLE [Concomitant]
     Active Substance: OMEPRAZOLE
  6. VITAMIN D3 [Concomitant]
     Active Substance: CHOLECALCIFEROL
  7. HYDROXYCHLOROQUINE [Concomitant]
     Active Substance: HYDROXYCHLOROQUINE
  8. ETODOLAC [Concomitant]
     Active Substance: ETODOLAC
  9. ZYRTEC [Concomitant]
     Active Substance: CETIRIZINE HYDROCHLORIDE
  10. ACETAMINOPHEN [Concomitant]
     Active Substance: ACETAMINOPHEN
  11. SOLU-MEDROL [Concomitant]
     Active Substance: METHYLPREDNISOLONE SODIUM SUCCINATE
  12. SULFASALAZINE [Concomitant]
     Active Substance: SULFASALAZINE
  13. ADVIL [Concomitant]
     Active Substance: IBUPROFEN

REACTIONS (4)
  - Feeling abnormal [Recovered/Resolved]
  - Hand deformity [Not Recovered/Not Resolved]
  - Gout [Not Recovered/Not Resolved]
  - Paraesthesia [Not Recovered/Not Resolved]
